FAERS Safety Report 20594208 (Version 6)
Quarter: 2022Q3

REPORT INFORMATION
  Report Type: Report from Study
  Country: US (occurrence: US)
  Receive Date: 20220315
  Receipt Date: 20220808
  Transmission Date: 20221026
  Serious: Yes (Hospitalization, Other)
  Sender: FDA-Public Use
  Company Number: US-NOVARTISTESTPH-NVSC2022US059231

PATIENT
  Age: 60 Year
  Sex: Female

DRUGS (2)
  1. COSENTYX [Suspect]
     Active Substance: SECUKINUMAB
     Indication: Psoriasis
     Dosage: 150 MG, QW
     Route: 058
     Dates: start: 20220304
  2. COSENTYX [Suspect]
     Active Substance: SECUKINUMAB
     Dosage: UNK, (LAST DOSE)
     Route: 065
     Dates: start: 20220513

REACTIONS (12)
  - Retinal tear [Recovering/Resolving]
  - Photopsia [Recovering/Resolving]
  - Sjogren^s syndrome [Unknown]
  - Dry throat [Unknown]
  - Skin exfoliation [Recovering/Resolving]
  - Urinary tract infection bacterial [Recovering/Resolving]
  - Pyrexia [Recovering/Resolving]
  - Laryngospasm [Recovered/Resolved]
  - Psoriasis [Not Recovered/Not Resolved]
  - Blister [Unknown]
  - Alopecia [Unknown]
  - Gastrooesophageal reflux disease [Unknown]

NARRATIVE: CASE EVENT DATE: 20220514
